FAERS Safety Report 7190741-8 (Version None)
Quarter: 2010Q4

REPORT INFORMATION
  Report Type: 
  Country: None (occurrence: None)
  Receive Date: 20101223
  Receipt Date: 20101217
  Transmission Date: 20110411
  Serious: Yes (Death)
  Sender: FDA-Public Use
  Company Number: US-PERRIGO-10US015690

PATIENT
  Age: 12 Year

DRUGS (1)
  1. ACETAMINOPHEN [Suspect]
     Indication: MALAISE
     Dosage: 20 MG/KG, QD
     Route: 065

REACTIONS (1)
  - HEPATOTOXICITY [None]
